FAERS Safety Report 8048353-X (Version None)
Quarter: 2012Q1

REPORT INFORMATION
  Report Type: 
  Country: None (occurrence: None)
  Receive Date: 20120117
  Receipt Date: 20120113
  Transmission Date: 20120608
  Serious: No
  Sender: FDA-Public Use
  Company Number: US-PFIZER INC-2012010951

PATIENT
  Sex: Male
  Weight: 127 kg

DRUGS (6)
  1. CHANTIX [Suspect]
     Indication: SMOKING CESSATION THERAPY
     Dosage: 0.5 MG, 1X/DAY
     Route: 048
     Dates: start: 20120113
  2. HALOPERIDOL [Concomitant]
     Dosage: 10 MG, UNK
  3. LORAZEPAM [Concomitant]
     Dosage: 1 MG, UNK
  4. DIVALPROEX SODIUM [Concomitant]
     Dosage: 500 MG, UNK
  5. BENZTROPINE MESYLATE [Concomitant]
     Dosage: 1 MG, UNK
  6. TRAZODONE [Concomitant]
     Dosage: 100 MG, UNK

REACTIONS (1)
  - SOMNOLENCE [None]
